FAERS Safety Report 20461339 (Version 1)
Quarter: 2022Q1

REPORT INFORMATION
  Report Type: Spontaneous
  Country: US (occurrence: None)
  Receive Date: 20220210
  Receipt Date: 20220210
  Transmission Date: 20220423
  Serious: Yes (Other)
  Sender: FDA-Public Use
  Company Number: None

PATIENT
  Age: 47 Year
  Sex: Female
  Weight: 55.8 kg

DRUGS (5)
  1. EPRONTIA [Suspect]
     Active Substance: TOPIRAMATE
     Indication: Migraine
     Dosage: 60 TABLETS TWICE A DAY ORAL
     Route: 048
     Dates: start: 20220101, end: 20220201
  2. ZOLOFT [Concomitant]
  3. TOPAMAX [Concomitant]
  4. ADDERAL [Concomitant]
  5. MELOXICAM [Concomitant]
     Active Substance: MELOXICAM

REACTIONS (5)
  - Peripheral swelling [None]
  - Rash [None]
  - Product dispensing error [None]
  - Vomiting [None]
  - Vision blurred [None]

NARRATIVE: CASE EVENT DATE: 20220210
